FAERS Safety Report 7229299-3 (Version None)
Quarter: 2011Q1

REPORT INFORMATION
  Report Type: 
  Country: None (occurrence: None)
  Receive Date: 20110117
  Receipt Date: 20110113
  Transmission Date: 20110831
  Serious: Yes (Other)
  Sender: FDA-Public Use
  Company Number: A0905792A

PATIENT
  Age: 31 Year
  Sex: Male

DRUGS (1)
  1. NICORETTE (MINT) [Suspect]
     Indication: SMOKING CESSATION THERAPY
     Route: 002
     Dates: start: 20110105, end: 20110111

REACTIONS (6)
  - ABDOMINAL DISCOMFORT [None]
  - HAEMATOCHEZIA [None]
  - THROAT IRRITATION [None]
  - DIARRHOEA [None]
  - HAEMORRHOIDS [None]
  - PAINFUL DEFAECATION [None]
